FAERS Safety Report 15358380 (Version 1)
Quarter: 2018Q3

REPORT INFORMATION
  Report Type: Spontaneous
  Country: US (occurrence: US)
  Receive Date: 20180906
  Receipt Date: 20180906
  Transmission Date: 20181010
  Serious: No
  Sender: FDA-Public Use
  Company Number: US-PERRIGO-18US004018

PATIENT
  Age: 34 Year
  Sex: Female

DRUGS (2)
  1. EVAMIST [Suspect]
     Active Substance: ESTRADIOL
     Dosage: 3.06 MG, QD
     Route: 062
  2. EVAMIST [Suspect]
     Active Substance: ESTRADIOL
     Indication: HORMONE REPLACEMENT THERAPY
     Dosage: UNKNOWN, 4 TO 5 TIMES
     Route: 062
     Dates: start: 20180319, end: 20180402

REACTIONS (2)
  - Incorrect dose administered [Recovered/Resolved]
  - Drug ineffective [Unknown]

NARRATIVE: CASE EVENT DATE: 20180319
